FAERS Safety Report 9847509 (Version 1)
Quarter: 2014Q1

REPORT INFORMATION
  Report Type: Spontaneous
  Country: US (occurrence: US)
  Receive Date: 20140128
  Receipt Date: 20140128
  Transmission Date: 20141002
  Serious: No
  Sender: FDA-Public Use
  Company Number: US-009507513-1401USA010990

PATIENT
  Age: 60 Year
  Sex: Male

DRUGS (2)
  1. PEGINTRON [Suspect]
     Dosage: 120MCG/0.5ML, INJECT ONE PEN SUBCUTANEOUS WEEKLY
     Route: 058
  2. RIBAPAK [Suspect]
     Dosage: 800MG/DAY

REACTIONS (2)
  - Eye irritation [Unknown]
  - Dry eye [Unknown]
